FAERS Safety Report 15796493 (Version 1)
Quarter: 2019Q1

REPORT INFORMATION
  Report Type: Spontaneous
  Country: US (occurrence: US)
  Receive Date: 20190108
  Receipt Date: 20190108
  Transmission Date: 20190417
  Serious: Yes (Hospitalization)
  Sender: FDA-Public Use
  Company Number: US-HORIZON-RAV-0005-2019

PATIENT
  Age: 1 Day
  Sex: Female

DRUGS (2)
  1. RAVICTI [Suspect]
     Active Substance: GLYCEROL PHENYLBUTYRATE
     Indication: UREA CYCLE DISORDER
     Dosage: 0.4 ML VIA G-TUBE EVERY 4 HOURS
  2. CARBAGLU [Concomitant]
     Active Substance: CARGLUMIC ACID

REACTIONS (1)
  - Ammonia increased [Not Recovered/Not Resolved]
